FAERS Safety Report 9370240 (Version 1)
Quarter: 2013Q2

REPORT INFORMATION
  Report Type: Spontaneous
  Country: US (occurrence: US)
  Receive Date: 20130626
  Receipt Date: 20130626
  Transmission Date: 20140414
  Serious: Yes (Other)
  Sender: FDA-Public Use
  Company Number: US-PFIZER INC-2013189623

PATIENT
  Age: 67 Year
  Sex: Female
  Weight: 70.3 kg

DRUGS (2)
  1. CELEBREX [Suspect]
     Indication: ARTHRITIS
     Dosage: UNK, AS NEEDED
     Dates: start: 2000
  2. ENBREL [Suspect]
     Indication: ARTHRITIS
     Dosage: ONCE A WEEK
     Route: 065
     Dates: start: 2000

REACTIONS (3)
  - Renal disorder [Unknown]
  - Drug hypersensitivity [Unknown]
  - Night sweats [Unknown]
